FAERS Safety Report 15549616 (Version 7)
Quarter: 2019Q1

REPORT INFORMATION
  Report Type: Spontaneous
  Country: PT (occurrence: PT)
  Receive Date: 20181025
  Receipt Date: 20190328
  Transmission Date: 20190417
  Serious: Yes (Hospitalization, Other)
  Sender: FDA-Public Use
  Company Number: PT-AUROBINDO-AUR-APL-2018-051881

PATIENT

DRUGS (6)
  1. ENOXAPARIN [Suspect]
     Active Substance: ENOXAPARIN
     Indication: PULMONARY EMBOLISM
     Dosage: 100 MILLIGRAM, ONCE A DAY (TOOK 10 INJECTIONS)
     Route: 065
  2. SIMVASTATIN 10 MG FILM COATED TABLETS [Suspect]
     Active Substance: SIMVASTATIN
     Indication: VENOUS THROMBOSIS
     Dosage: 10 MILLIGRAM, UNK
     Route: 048
  3. WARFARIN [Concomitant]
     Active Substance: WARFARIN
     Indication: VENOUS THROMBOSIS
     Dosage: 5 MILLIGRAM, ONCE A DAY
     Route: 065
  4. ENOXAPARIN [Suspect]
     Active Substance: ENOXAPARIN
     Indication: VENOUS THROMBOSIS
  5. ENOXAPARIN [Suspect]
     Active Substance: ENOXAPARIN
     Indication: ANTICOAGULANT THERAPY
  6. PERINDOPRIL [Suspect]
     Active Substance: PERINDOPRIL
     Indication: VENOUS THROMBOSIS
     Dosage: 10 MILLIGRAM,UNK
     Route: 065

REACTIONS (7)
  - Wheezing [Unknown]
  - Pulmonary embolism [Recovered/Resolved]
  - Chest pain [Unknown]
  - Deep vein thrombosis [Unknown]
  - Dyspnoea [Unknown]
  - Tachycardia [Unknown]
  - Tachypnoea [Unknown]
